FAERS Safety Report 5315353-X (Version None)
Quarter: 2007Q2

REPORT INFORMATION
  Report Type: 
  Country: None (occurrence: None)
  Receive Date: 20070502
  Receipt Date: 20070419
  Transmission Date: 20071010
  Serious: Yes (Other)
  Sender: FDA-Public Use
  Company Number: GBWYE775424AUG06

PATIENT
  Sex: Female

DRUGS (4)
  1. ETANERCEPT [Suspect]
     Indication: PSORIATIC ARTHROPATHY
     Dosage: 50 MG FEQUENCY UNKNOWN
     Route: 058
     Dates: start: 20040101, end: 20060823
  2. DICLOFENAC [Concomitant]
     Dosage: 75MG, FREQUENCY UNKNOWN
     Dates: start: 20000101
  3. VENLAFAXIINE HCL [Concomitant]
     Dosage: UNKNOWN
     Route: 048
     Dates: start: 20030101
  4. METHOTREXATE [Concomitant]
     Dosage: 20MG, FREQUENCY UNKNOWN
     Dates: start: 20020101

REACTIONS (1)
  - ABORTION SPONTANEOUS [None]
